FAERS Safety Report 9311686 (Version 3)
Quarter: 2013Q2

REPORT INFORMATION
  Report Type: Spontaneous
  Country: IE (occurrence: IE)
  Receive Date: 20130528
  Receipt Date: 20130628
  Transmission Date: 20140414
  Serious: Yes (Hospitalization, Other)
  Sender: FDA-Public Use
  Company Number: IE-PFIZER INC-2013129781

PATIENT
  Age: 13 Month
  Sex: Female
  Weight: 8.2 kg

DRUGS (6)
  1. DIFLUCAN [Suspect]
     Indication: FUNGAL INFECTION
     Dosage: 98 MG, DAILY
     Route: 042
     Dates: start: 20130322, end: 20130322
  2. DIFLUCAN [Suspect]
     Dosage: 50 MG, DAILY
     Route: 042
     Dates: start: 20130323, end: 20130324
  3. DIFLUCAN [Suspect]
     Dosage: 80 MG, DAILY
     Route: 042
     Dates: start: 20130325, end: 20130327
  4. DIFLUCAN [Suspect]
     Dosage: 98 MG, DAILY
     Route: 042
     Dates: start: 20130328, end: 20130331
  5. DIFLUCAN [Suspect]
     Indication: FUNGAL INFECTION
     Dosage: 98 MG, DAILY
     Route: 048
     Dates: start: 20130401, end: 20130423
  6. PARACETAMOL [Concomitant]
     Indication: ANALGESIC THERAPY
     Dosage: 120 MG, 4X/DAY
     Route: 048
     Dates: start: 20130322, end: 20130403

REACTIONS (1)
  - Hypercalcaemia [Recovered/Resolved]
